FAERS Safety Report 20665949 (Version 1)
Quarter: 2022Q2

REPORT INFORMATION
  Report Type: Report from Study
  Country: US (occurrence: US)
  Receive Date: 20220403
  Receipt Date: 20220403
  Transmission Date: 20220721
  Serious: Yes (Other)
  Sender: FDA-Public Use
  Company Number: US-JNJFOC-20220345568

PATIENT
  Sex: Male

DRUGS (2)
  1. ABIRATERONE ACETATE [Suspect]
     Active Substance: ABIRATERONE ACETATE
     Indication: Prostate cancer
     Route: 048
  2. KETOCONAZOLE [Suspect]
     Active Substance: KETOCONAZOLE
     Indication: Product used for unknown indication
     Route: 065

REACTIONS (1)
  - Amyotrophic lateral sclerosis [Unknown]
